FAERS Safety Report 9403647 (Version 2)
Quarter: 2013Q4

REPORT INFORMATION
  Report Type: Report from Study
  Country: DE (occurrence: DE)
  Receive Date: 20130717
  Receipt Date: 20131024
  Transmission Date: 20140711
  Serious: Yes (Hospitalization)
  Sender: FDA-Public Use
  Company Number: DE-ROCHE-1249360

PATIENT
  Age: 70 Year
  Sex: Female
  Weight: 94 kg

DRUGS (17)
  1. BEVACIZUMAB [Suspect]
     Indication: BREAST CANCER METASTATIC
     Dosage: MOST RECENT DOSE PRIOR TO EVENT  9/JUL/2013?MOST RECENT DOSE PRIOR TO EVENT COLITIS 10/SEP/2013
     Route: 042
     Dates: start: 20130326
  2. BEVACIZUMAB [Suspect]
     Dosage: MOST RECENT DOSE PRIOR TO EVENT  9/JUL/2013?MOST RECENT DOSE PRIOR TO EVENT COLITIS 10/SEP/2013
     Route: 042
     Dates: start: 20130326
  3. BEVACIZUMAB [Suspect]
     Dosage: MOST RECENT DOSE PRIOR TO EVENT COLITIS 10/SEP/2013
     Route: 042
     Dates: start: 20130910, end: 20130910
  4. ZOMETA [Suspect]
     Indication: BREAST CANCER METASTATIC
     Route: 042
     Dates: start: 20130326
  5. DOCETAXEL [Suspect]
     Indication: BREAST CANCER METASTATIC
     Route: 042
     Dates: start: 20130326
  6. DOCETAXEL [Suspect]
     Route: 042
     Dates: start: 20130416
  7. DOCETAXEL [Suspect]
     Route: 042
     Dates: start: 20130507
  8. DOCETAXEL [Suspect]
     Route: 042
     Dates: start: 20130528
  9. DOCETAXEL [Suspect]
     Route: 042
     Dates: start: 20130618
  10. DOCETAXEL [Suspect]
     Route: 042
     Dates: start: 20130709
  11. TORASEMIDE [Concomitant]
     Indication: HYPERTENSION
     Route: 048
     Dates: end: 201307
  12. VERAPAMIL [Concomitant]
     Indication: HYPERTENSION
     Route: 048
     Dates: end: 201309
  13. VERAPAMIL [Concomitant]
     Route: 048
  14. MOXONIDIN [Concomitant]
     Indication: HYPERTENSION
     Route: 048
  15. VALSARTAN [Concomitant]
     Indication: HYPERTENSION
     Route: 048
  16. HYDROCHLOROTHIAZIDE [Concomitant]
     Indication: HYPERTENSION
     Route: 048
     Dates: end: 201307
  17. ASS [Concomitant]
     Indication: MYOCARDIAL INFARCTION
     Route: 048
     Dates: start: 201309

REACTIONS (2)
  - Renal failure [Recovered/Resolved]
  - Colitis [Recovered/Resolved]
